FAERS Safety Report 9512293 (Version 1)
Quarter: 2013Q3

REPORT INFORMATION
  Report Type: Spontaneous
  Country: US (occurrence: US)
  Receive Date: 20130910
  Receipt Date: 20130910
  Transmission Date: 20140515
  Serious: No
  Sender: FDA-Public Use
  Company Number: -SAAVPROD-BMS16539298

PATIENT
  Age: 87 Year
  Sex: Female

DRUGS (6)
  1. AVAPRO TABS 150 MG [Suspect]
     Indication: BLOOD PRESSURE ABNORMAL
     Route: 048
  2. NORVASC [Concomitant]
  3. LOPRESSOR [Concomitant]
  4. SYNTHROID [Concomitant]
  5. NITROFURANTOIN [Concomitant]
     Dosage: CAPS.
  6. ALDACTONE [Concomitant]

REACTIONS (1)
  - Dysgeusia [Unknown]
